FAERS Safety Report 18817690 (Version 1)
Quarter: 2021Q1

REPORT INFORMATION
  Report Type: Spontaneous
  Country: US (occurrence: US)
  Receive Date: 20210201
  Receipt Date: 20210201
  Transmission Date: 20210419
  Serious: No
  Sender: FDA-Public Use
  Company Number: US-LA JOLLA PHARMACEUTICAL-2021TP000001

PATIENT

DRUGS (1)
  1. XERAVA [Suspect]
     Active Substance: ERAVACYCLINE DIHYDROCHLORIDE
     Indication: PRODUCT USED FOR UNKNOWN INDICATION
     Route: 042

REACTIONS (1)
  - Adverse drug reaction [Unknown]
